FAERS Safety Report 19666833 (Version 1)
Quarter: 2021Q3

REPORT INFORMATION
  Report Type: Spontaneous
  Country: US (occurrence: US)
  Receive Date: 20210806
  Receipt Date: 20210806
  Transmission Date: 20211014
  Serious: Yes (Hospitalization)
  Sender: FDA-Public Use
  Company Number: None

PATIENT
  Age: 55 Year
  Sex: Female
  Weight: 64.4 kg

DRUGS (1)
  1. PACLITAXEL. [Suspect]
     Active Substance: PACLITAXEL
     Indication: BREAST CANCER
     Dosage: ?          OTHER FREQUENCY:ONCE;?
     Route: 042
     Dates: start: 20210802, end: 20210802

REACTIONS (6)
  - Cerebrovascular accident [None]
  - Infusion related reaction [None]
  - Chest pain [None]
  - Flushing [None]
  - Back pain [None]
  - Throat tightness [None]

NARRATIVE: CASE EVENT DATE: 20210802
